FAERS Safety Report 10473234 (Version 2)
Quarter: 2014Q3

REPORT INFORMATION
  Report Type: Spontaneous
  Country: US (occurrence: US)
  Receive Date: 20140924
  Receipt Date: 20140924
  Transmission Date: 20150326
  Serious: Yes (Other)
  Sender: FDA-Public Use
  Company Number: US-DRREDDYS-USA/USA/14/0039274

PATIENT
  Age: 36 Year
  Sex: Male
  Weight: 81.64 kg

DRUGS (1)
  1. FINASTERIDE 1 MG [Suspect]
     Active Substance: FINASTERIDE
     Indication: ANDROGENETIC ALOPECIA
     Route: 048
     Dates: start: 20140325

REACTIONS (3)
  - Semen volume decreased [Recovered/Resolved]
  - Libido decreased [Recovered/Resolved]
  - Erectile dysfunction [Recovered/Resolved]

NARRATIVE: CASE EVENT DATE: 20140325
